FAERS Safety Report 22195265 (Version 1)
Quarter: 2023Q2

REPORT INFORMATION
  Report Type: Spontaneous
  Country: US (occurrence: US)
  Receive Date: 20230411
  Receipt Date: 20230411
  Transmission Date: 20230722
  Serious: No
  Sender: FDA-Public Use
  Company Number: US-TEVA-2023-US-2873451

PATIENT
  Sex: Female

DRUGS (1)
  1. AJOVY [Suspect]
     Active Substance: FREMANEZUMAB-VFRM
     Indication: Product used for unknown indication
     Dosage: 225 MILLIGRAM DAILY; 225 MG MONTHLY
     Route: 058

REACTIONS (4)
  - Injection site pain [Unknown]
  - Wrong technique in product usage process [Unknown]
  - Accidental exposure to product [Unknown]
  - Product dose omission issue [Unknown]
